FAERS Safety Report 18767018 (Version 1)
Quarter: 2021Q1

REPORT INFORMATION
  Report Type: Spontaneous
  Country: US (occurrence: US)
  Receive Date: 20210120
  Receipt Date: 20210120
  Transmission Date: 20210419
  Serious: Yes (Hospitalization)
  Sender: FDA-Public Use
  Company Number: None

PATIENT
  Age: 49 Year
  Sex: Female

DRUGS (3)
  1. NONE LISTED [Concomitant]
  2. CINACALCET. [Suspect]
     Active Substance: CINACALCET
     Indication: RENAL TRANSPLANT
     Route: 048
     Dates: start: 20200417
  3. ARANESP [Suspect]
     Active Substance: DARBEPOETIN ALFA
     Indication: RENAL TRANSPLANT
     Dosage: ?          OTHER FREQUENCY:ONCE A WEEK;?
     Route: 058
     Dates: start: 20180227

REACTIONS (1)
  - Haemoglobin decreased [None]

NARRATIVE: CASE EVENT DATE: 20210120
